FAERS Safety Report 7568331-4 (Version None)
Quarter: 2011Q2

REPORT INFORMATION
  Report Type: 
  Country: None (occurrence: None)
  Receive Date: 20110623
  Receipt Date: 20100920
  Transmission Date: 20111010
  Serious: Yes (Hospitalization)
  Sender: FDA-Public Use
  Company Number: A0882797A

PATIENT
  Sex: Female

DRUGS (2)
  1. AVANDIA [Suspect]
     Indication: DIABETES MELLITUS
  2. AVANDAMET [Suspect]
     Indication: DIABETES MELLITUS

REACTIONS (6)
  - BUNDLE BRANCH BLOCK RIGHT [None]
  - HEART INJURY [None]
  - CORONARY ARTERY DISEASE [None]
  - MYOCARDIAL INFARCTION [None]
  - ROAD TRAFFIC ACCIDENT [None]
  - PULMONARY EMBOLISM [None]
